FAERS Safety Report 7576811-0 (Version None)
Quarter: 2011Q2

REPORT INFORMATION
  Report Type: 
  Country: None (occurrence: None)
  Receive Date: 20110628
  Receipt Date: 20100116
  Transmission Date: 20111010
  Serious: Yes (Death, Other)
  Sender: FDA-Public Use
  Company Number: US-BAYER-201011147NA

PATIENT
  Sex: Male
  Weight: 52.381 kg

DRUGS (8)
  1. ANCEF [Concomitant]
     Dosage: 1 G, UNK
     Route: 042
     Dates: start: 20071227
  2. HEPARIN [Concomitant]
     Dosage: 3000 U, UNK
     Route: 042
     Dates: start: 20071227
  3. ISOSORBIDE MONONITRATE [Concomitant]
     Dosage: 30 MG, QD
     Route: 048
  4. LEVOPHED [Concomitant]
     Dosage: 0.04 MG, UNK
     Route: 042
     Dates: start: 20071227
  5. LIPITOR [Concomitant]
     Dosage: 10 MG, HS
     Route: 048
  6. LISINOPRIL [Concomitant]
     Dosage: 40 MG, HS
     Route: 048
  7. TRASYLOL [Suspect]
     Indication: CORONARY ARTERY BYPASS
     Dosage: UNK
     Route: 042
     Dates: start: 20071225
  8. ACETYLSALICYLIC ACID SRT [Concomitant]
     Dosage: 81 MG, UNK
     Route: 048

REACTIONS (14)
  - RENAL IMPAIRMENT [None]
  - FEAR [None]
  - RENAL INJURY [None]
  - DEPRESSION [None]
  - ORGAN FAILURE [None]
  - CEREBROVASCULAR ACCIDENT [None]
  - PAIN [None]
  - DEATH [None]
  - CARDIAC DISORDER [None]
  - INJURY [None]
  - ANXIETY [None]
  - RENAL FAILURE [None]
  - UNEVALUABLE EVENT [None]
  - ANHEDONIA [None]
